FAERS Safety Report 23799066 (Version 2)
Quarter: 2024Q2

REPORT INFORMATION
  Report Type: Other
  Country: JP (occurrence: JP)
  Receive Date: 20240430
  Receipt Date: 20240502
  Transmission Date: 20240715
  Serious: Yes (Death, Hospitalization)
  Sender: FDA-Public Use
  Company Number: JP-CHUGAI-2021032743

PATIENT
  Age: 61 Year
  Sex: Male
  Weight: 59.2 kg

DRUGS (5)
  1. TECENTRIQ [Suspect]
     Active Substance: ATEZOLIZUMAB
     Indication: Hepatocellular carcinoma
     Route: 065
     Dates: start: 20210927, end: 20210927
  2. AVASTIN [Suspect]
     Active Substance: BEVACIZUMAB
     Indication: Hepatocellular carcinoma
     Dosage: 15 MILLIGRAM/KILOGRAM, QD
     Route: 065
     Dates: start: 20210927, end: 20210927
  3. BEVACIZUMAB [Suspect]
     Active Substance: BEVACIZUMAB
     Indication: Hepatocellular carcinoma
     Route: 065
  4. URSODIOL [Concomitant]
     Active Substance: URSODIOL
     Indication: Liver disorder
     Dosage: 200 MILLIGRAM, TID
     Route: 048
     Dates: start: 20210917
  5. BEPOTASTINE BESYLATE [Concomitant]
     Active Substance: BEPOTASTINE BESYLATE
     Indication: Rhinitis allergic
     Dosage: 10 MILLIGRAM, BID
     Route: 048

REACTIONS (4)
  - Cellulitis [Fatal]
  - Septic shock [Fatal]
  - Immune-mediated hepatitis [Recovering/Resolving]
  - Tumour associated fever [Unknown]
